FAERS Safety Report 7772019-4 (Version None)
Quarter: 2011Q3

REPORT INFORMATION
  Report Type: 
  Country: None (occurrence: None)
  Receive Date: 20110922
  Receipt Date: 20100813
  Transmission Date: 20111222
  Serious: No
  Sender: FDA-Public Use
  Company Number: US-ASTRAZENECA-2010SE38144

PATIENT
  Age: 47 Year
  Sex: Female
  Weight: 74.4 kg

DRUGS (4)
  1. SEROQUEL [Suspect]
     Route: 048
  2. XANAX [Concomitant]
  3. SEROQUEL [Suspect]
     Indication: BIPOLAR DISORDER
     Route: 048
     Dates: start: 20070101
  4. AMITRIPTYLINE HCL [Concomitant]

REACTIONS (3)
  - ADVERSE EVENT [None]
  - INSOMNIA [None]
  - DRUG DOSE OMISSION [None]
